FAERS Safety Report 5682806-4 (Version None)
Quarter: 2008Q1

REPORT INFORMATION
  Report Type: 
  Country: None (occurrence: None)
  Receive Date: 20080327
  Receipt Date: 20080321
  Transmission Date: 20080703
  Serious: Yes (Hospitalization)
  Sender: FDA-Public Use
  Company Number: US-BAXTER-2008BH002105

PATIENT
  Age: 53 Year
  Sex: Male
  Weight: 102 kg

DRUGS (4)
  1. BUMINATE 5% [Suspect]
     Indication: HYPOVOLAEMIA
     Route: 042
     Dates: start: 20080306, end: 20080306
  2. BUMINATE 5% [Suspect]
     Route: 042
     Dates: start: 20080309, end: 20080309
  3. BUMINATE 5% [Suspect]
     Route: 042
     Dates: start: 20080308, end: 20080308
  4. ACIDOPHILUS ^ZYMA^ [Concomitant]
     Indication: DRUG USE FOR UNKNOWN INDICATION
     Dosage: DOSE UNIT:UNKNOWN
     Route: 065

REACTIONS (3)
  - ANAPHYLACTIC REACTION [None]
  - BLOOD CULTURE POSITIVE [None]
  - SEPSIS [None]
